FAERS Safety Report 6928104-X (Version None)
Quarter: 2010Q3

REPORT INFORMATION
  Report Type: 
  Country: None (occurrence: None)
  Receive Date: 20100817
  Receipt Date: 20100714
  Transmission Date: 20110219
  Serious: Yes (Hospitalization, Other)
  Sender: FDA-Public Use
  Company Number: PHEH2006US01245

PATIENT
  Sex: Male
  Weight: 83.447 kg

DRUGS (40)
  1. ZOMETA [Suspect]
     Dosage: 4 MG, Q 4 WEEKS
     Dates: end: 20050101
  2. FOSAMAX [Suspect]
  3. DES [Concomitant]
     Dosage: UNK
     Dates: end: 20041012
  4. DECADRON [Concomitant]
  5. MITOXANTRONE [Concomitant]
     Dosage: UNK
     Dates: start: 20050501, end: 20050801
  6. METOPROLOL TARTRATE [Concomitant]
  7. PLAVIX [Concomitant]
  8. DIOVAN [Concomitant]
  9. CRESTOR [Concomitant]
  10. OMEPRAZOLE [Concomitant]
  11. OXYCONTIN [Concomitant]
  12. POTASSIUM [Concomitant]
  13. DIGOXIN [Concomitant]
  14. SPIRIVA [Concomitant]
  15. LUNESTA [Concomitant]
  16. ALBUTEROL [Concomitant]
  17. ACETAMINOPHEN AND HYDROCODONE BITARTRATE [Concomitant]
  18. CLOPIDOGREL [Concomitant]
  19. LIPITOR [Concomitant]
  20. THEO-24 [Concomitant]
  21. SELENIUM [Concomitant]
  22. OXYGEN [Concomitant]
  23. BEXTRA [Concomitant]
  24. ULTRACET [Concomitant]
  25. LOPRESSOR [Concomitant]
  26. AMIODARONE [Concomitant]
  27. LASIX [Concomitant]
  28. LISINOPRIL [Concomitant]
  29. NITROGLYCERIN [Concomitant]
  30. ADVAIR DISKUS 100/50 [Concomitant]
  31. ASPIRIN [Concomitant]
  32. COLACE [Concomitant]
  33. PROTONIX [Concomitant]
  34. ZOLOFT [Concomitant]
  35. PERCOCET [Concomitant]
  36. BENADRYL ^WARNER-LAMBERT^               /USA/ [Concomitant]
  37. AMBIEN [Concomitant]
  38. COUMADIN [Concomitant]
  39. LIPITOR [Concomitant]
  40. TRICOR [Concomitant]

REACTIONS (55)
  - ANAEMIA [None]
  - AORTIC VALVE INCOMPETENCE [None]
  - ARTHRALGIA [None]
  - ARTHRITIS [None]
  - ATRIOVENTRICULAR BLOCK [None]
  - BACK PAIN [None]
  - BLOOD CHLORIDE DECREASED [None]
  - BLOOD CREATININE DECREASED [None]
  - BLOOD SODIUM DECREASED [None]
  - BLOOD UREA DECREASED [None]
  - BRONCHITIS [None]
  - BUNDLE BRANCH BLOCK LEFT [None]
  - CENTRAL VENOUS CATHETERISATION [None]
  - CHRONIC SINUSITIS [None]
  - COMPRESSION FRACTURE [None]
  - DYSURIA [None]
  - EJECTION FRACTION DECREASED [None]
  - ESCHERICHIA URINARY TRACT INFECTION [None]
  - FALL [None]
  - GINGIVAL SWELLING [None]
  - GYNAECOMASTIA [None]
  - HAEMOGLOBIN DECREASED [None]
  - HEADACHE [None]
  - HEPATIC STEATOSIS [None]
  - HIP FRACTURE [None]
  - HYPOKALAEMIA [None]
  - HYPONATRAEMIA [None]
  - INTERMITTENT CLAUDICATION [None]
  - JAW DISORDER [None]
  - JAW OPERATION [None]
  - KNEE ARTHROPLASTY [None]
  - LEFT VENTRICULAR DYSFUNCTION [None]
  - METASTASES TO LUNG [None]
  - MYALGIA [None]
  - NAUSEA [None]
  - ORAL DISORDER [None]
  - OSTEOARTHRITIS [None]
  - OSTEOMYELITIS [None]
  - OSTEONECROSIS OF JAW [None]
  - OSTEOPENIA [None]
  - PAIN IN JAW [None]
  - PERIPHERAL VASCULAR DISORDER [None]
  - PNEUMONIA [None]
  - POLYP [None]
  - PULMONARY HYPERTENSION [None]
  - RENAL PAIN [None]
  - RIB FRACTURE [None]
  - ROTATOR CUFF SYNDROME [None]
  - SKIN NECROSIS [None]
  - SLEEP APNOEA SYNDROME [None]
  - SPINAL COLUMN STENOSIS [None]
  - TESTICULAR ATROPHY [None]
  - TOOTH DISORDER [None]
  - VERTEBROPLASTY [None]
  - WEIGHT DECREASED [None]
